FAERS Safety Report 6287820-6 (Version None)
Quarter: 2009Q3

REPORT INFORMATION
  Report Type: 
  Country: None (occurrence: None)
  Receive Date: 20090729
  Receipt Date: 20090723
  Transmission Date: 20100115
  Serious: Yes (Hospitalization)
  Sender: FDA-Public Use
  Company Number: DE-BIOGENIDEC-2009BI020466

PATIENT
  Age: 55 Year
  Sex: Female
  Weight: 66 kg

DRUGS (2)
  1. AVONEX [Suspect]
     Indication: RELAPSING-REMITTING MULTIPLE SCLEROSIS
     Route: 030
     Dates: start: 20080801
  2. L-THYROXIN [Concomitant]
     Indication: THYROIDECTOMY
     Route: 048
     Dates: start: 20000101

REACTIONS (1)
  - BREAST CANCER [None]
